FAERS Safety Report 12965089 (Version 2)
Quarter: 2016Q4

REPORT INFORMATION
  Report Type: Spontaneous
  Country: US (occurrence: US)
  Receive Date: 20161122
  Receipt Date: 20161122
  Transmission Date: 20170207
  Serious: Yes (Hospitalization)
  Sender: FDA-Public Use
  Company Number: US-INSYS THERAPEUTICS, INC-INS201611-000737

PATIENT
  Age: 38 Year
  Sex: Male

DRUGS (4)
  1. FENTANYL. [Suspect]
     Active Substance: FENTANYL
     Indication: ABDOMINAL PAIN
  2. MECLIZINE [Suspect]
     Active Substance: MECLIZINE HYDROCHLORIDE
  3. ALPRAZOLAM. [Suspect]
     Active Substance: ALPRAZOLAM
  4. OXYCODONE [Suspect]
     Active Substance: OXYCODONE

REACTIONS (1)
  - Narcotic bowel syndrome [Unknown]
